FAERS Safety Report 21738289 (Version 1)
Quarter: 2022Q4

REPORT INFORMATION
  Report Type: Spontaneous
  Country: CN (occurrence: CN)
  Receive Date: 20221216
  Receipt Date: 20221216
  Transmission Date: 20230113
  Serious: Yes (Other)
  Sender: FDA-Public Use
  Company Number: None

PATIENT
  Age: 51 Year
  Sex: Female
  Weight: 59 kg

DRUGS (6)
  1. CYCLOPHOSPHAMIDE [Suspect]
     Active Substance: CYCLOPHOSPHAMIDE
     Indication: Invasive ductal breast carcinoma
     Dosage: 0.75 G QD DILUTED WITH 250 ML OF SODIUM CHLORIDE INJECTION
     Route: 041
     Dates: start: 20221109, end: 20221109
  2. SODIUM CHLORIDE [Suspect]
     Active Substance: SODIUM CHLORIDE
     Indication: Medication dilution
     Dosage: 250 ML QD, USED TO DILUTE 0.75 G OF CYCLOPHOSPHMIDE INJECTION
     Route: 041
     Dates: start: 20221109, end: 20221109
  3. SODIUM CHLORIDE [Suspect]
     Active Substance: SODIUM CHLORIDE
     Dosage: 250 ML QD, USED TO DILUTE 110 MG OF DOCETAXEL INJECTION
     Route: 041
     Dates: start: 20221109, end: 20221109
  4. SODIUM CHLORIDE [Suspect]
     Active Substance: SODIUM CHLORIDE
     Dosage: 100 ML QD, USED TO DILUTE 110 MG OF EPIRUBICIN HYDROCHLORIDE INJECTION
     Route: 041
     Dates: start: 20221109, end: 20221109
  5. DOCETAXEL [Suspect]
     Active Substance: DOCETAXEL
     Indication: Invasive ductal breast carcinoma
     Dosage: 110 MG QD DILUTED WITH 250 ML OF SODIUM CHLORIDE INJECTION
     Route: 041
     Dates: start: 20221109, end: 20221109
  6. EPIRUBICIN HYDROCHLORIDE [Suspect]
     Active Substance: EPIRUBICIN HYDROCHLORIDE
     Indication: Invasive ductal breast carcinoma
     Dosage: 110 MG QD DILUTED WITH 100 ML OF SODIUM CHLORIDE INJECTION
     Route: 041
     Dates: start: 20221109, end: 20221109

REACTIONS (1)
  - Myelosuppression [Recovering/Resolving]

NARRATIVE: CASE EVENT DATE: 20221114
